FAERS Safety Report 9830879 (Version 1)
Quarter: 2014Q1

REPORT INFORMATION
  Report Type: Spontaneous
  Country: FR (occurrence: FR)
  Receive Date: 20140120
  Receipt Date: 20140120
  Transmission Date: 20141002
  Serious: Yes (Hospitalization, Other)
  Sender: FDA-Public Use
  Company Number: PHHY2013FR139680

PATIENT
  Age: 35 Year
  Sex: Female

DRUGS (3)
  1. NICARDIPINE [Suspect]
     Indication: HYPERTENSION
     Dosage: 50 MG, TID
     Route: 048
  2. LABETALOL [Suspect]
     Indication: HYPERTENSION
     Dosage: 200 MG, QID
     Route: 048
  3. MOLSIDOMINE [Suspect]
     Indication: HYPERTENSION
     Dosage: 2 MG, QID

REACTIONS (7)
  - HELLP syndrome [Unknown]
  - Renal arteriovenous malformation [Unknown]
  - Pre-eclampsia [Unknown]
  - Hypertension [Unknown]
  - Drug resistance [Unknown]
  - Exposure during pregnancy [Unknown]
  - Premature labour [Unknown]
